FAERS Safety Report 5562923-X (Version None)
Quarter: 2007Q4

REPORT INFORMATION
  Report Type: 
  Country: None (occurrence: None)
  Receive Date: 20071211
  Receipt Date: 20071211
  Transmission Date: 20080405
  Serious: Yes (Other)
  Sender: FDA-Public Use
  Company Number: None

PATIENT
  Age: 54 Year
  Sex: Female
  Weight: 65.7716 kg

DRUGS (4)
  1. VIOXX [Suspect]
     Indication: INFLAMMATION
     Dosage: 1 TAB DAILY PO
     Route: 048
     Dates: start: 20020101, end: 20060101
  2. VIOXX [Suspect]
     Indication: PAIN
     Dosage: 1 TAB DAILY PO
     Route: 048
     Dates: start: 20020101, end: 20060101
  3. BIAXIN [Suspect]
     Indication: INFLAMMATION
     Dosage: 1TAB DAILY PO
     Route: 048
     Dates: start: 20060101, end: 20061101
  4. BIAXIN [Suspect]
     Indication: PAIN
     Dosage: 1TAB DAILY PO
     Route: 048
     Dates: start: 20060101, end: 20061101

REACTIONS (1)
  - CARDIAC MURMUR [None]
